FAERS Safety Report 14971279 (Version 2)
Quarter: 2018Q3

REPORT INFORMATION
  Report Type: Report from Study
  Country: US (occurrence: US)
  Receive Date: 20180604
  Receipt Date: 20180917
  Transmission Date: 20181010
  Serious: Yes (Hospitalization)
  Sender: FDA-Public Use
  Company Number: US-ACTELION-A-US2016-145997

PATIENT
  Age: 71 Year
  Sex: Male
  Weight: 69.84 kg

DRUGS (6)
  1. TRACLEER [Suspect]
     Active Substance: BOSENTAN
     Indication: PULMONARY ARTERIAL HYPERTENSION
     Dosage: 125 MG, BID
     Route: 048
     Dates: start: 20140828
  2. ADCIRCA [Concomitant]
     Active Substance: TADALAFIL
  3. ADEMPAS [Concomitant]
     Active Substance: RIOCIGUAT
  4. COUMADIN [Concomitant]
     Active Substance: WARFARIN SODIUM
  5. POTASSIUM [Concomitant]
     Active Substance: POTASSIUM
  6. REMODULIN [Concomitant]
     Active Substance: TREPROSTINIL

REACTIONS (13)
  - Abdominal pain upper [Unknown]
  - Housebound [Unknown]
  - Disease progression [Unknown]
  - Constipation [Unknown]
  - Pain in jaw [Unknown]
  - Pneumonia [Unknown]
  - Dysphagia [Unknown]
  - Cataract [Unknown]
  - Condition aggravated [Unknown]
  - Myocardial infarction [Unknown]
  - Pulmonary arterial hypertension [Unknown]
  - Headache [Unknown]
  - Diarrhoea [Unknown]
